FAERS Safety Report 9668045 (Version 1)
Quarter: 2013Q4

REPORT INFORMATION
  Report Type: Spontaneous
  Country: US (occurrence: US)
  Receive Date: 20131104
  Receipt Date: 20131104
  Transmission Date: 20140711
  Serious: No
  Sender: FDA-Public Use
  Company Number: US-PFIZER INC-2013310433

PATIENT
  Age: 41 Year
  Sex: Female
  Weight: 73.47 kg

DRUGS (1)
  1. ADVIL PM [Suspect]
     Indication: SLEEP DISORDER
     Dosage: TWO CAPLETS, ONCE A DAY
     Route: 048
     Dates: start: 20131024, end: 20131028

REACTIONS (3)
  - Drug ineffective [Unknown]
  - Somnolence [Not Recovered/Not Resolved]
  - Fatigue [Not Recovered/Not Resolved]
